FAERS Safety Report 7101961-2 (Version None)
Quarter: 2010Q4

REPORT INFORMATION
  Report Type: 
  Country: None (occurrence: None)
  Receive Date: 20101109
  Receipt Date: 20101028
  Transmission Date: 20110411
  Serious: Yes (Life-Threatening)
  Sender: FDA-Public Use
  Company Number: US-004033

PATIENT
  Age: 52 Year
  Sex: Female
  Weight: 95.2554 kg

DRUGS (6)
  1. TRANEXAMIC ACID 650 MG [Suspect]
     Indication: MENORRHAGIA
     Dosage: 1950 MG TID ORAL
     Route: 048
     Dates: start: 20101007, end: 20101009
  2. CLARINEX [Concomitant]
  3. INSULIN [Concomitant]
  4. ASPIRIN [Concomitant]
  5. LEVOXYL [Concomitant]
  6. LIPITOR [Concomitant]

REACTIONS (2)
  - CHOKING [None]
  - TABLET ISSUE [None]
